FAERS Safety Report 20758740 (Version 1)
Quarter: 2022Q2

REPORT INFORMATION
  Report Type: Spontaneous
  Country: US (occurrence: US)
  Receive Date: 20220427
  Receipt Date: 20220427
  Transmission Date: 20220721
  Serious: No
  Sender: FDA-Public Use
  Company Number: US-PERRIGO-21US029422

PATIENT
  Sex: Male
  Weight: 56.689 kg

DRUGS (3)
  1. FAMOTIDINE [Suspect]
     Active Substance: FAMOTIDINE
     Indication: Gastrooesophageal reflux disease
     Dosage: 10 MG, QD
     Route: 048
     Dates: start: 20210811
  2. FAMOTIDINE [Suspect]
     Active Substance: FAMOTIDINE
     Indication: Accidental exposure to product
     Dosage: 20 MG, UNKNOWN
     Route: 048
     Dates: start: 2021, end: 2021
  3. MONTELUKAST [Concomitant]
     Active Substance: MONTELUKAST SODIUM
     Indication: Hypersensitivity
     Dosage: 5 MG CHEW, UNKNOWN
     Route: 065

REACTIONS (3)
  - Accidental exposure to product [Recovered/Resolved]
  - Incorrect product administration duration [Not Recovered/Not Resolved]
  - Product administered to patient of inappropriate age [Not Recovered/Not Resolved]

NARRATIVE: CASE EVENT DATE: 20210101
